FAERS Safety Report 13299433 (Version 1)
Quarter: 2017Q1

REPORT INFORMATION
  Report Type: Spontaneous
  Country: US (occurrence: US)
  Receive Date: 20170306
  Receipt Date: 20170306
  Transmission Date: 20170428
  Serious: No
  Sender: FDA-Public Use
  Company Number: US-PFIZER INC-2017095786

PATIENT
  Age: 34 Year
  Sex: Male
  Weight: 75.2 kg

DRUGS (13)
  1. GENOTROPIN MQ [Suspect]
     Active Substance: SOMATROPIN
     Indication: GROWTH HORMONE DEFICIENCY
     Dosage: 0.2 MG, DAILY
     Dates: start: 201212
  2. GENOTROPIN MQ [Suspect]
     Active Substance: SOMATROPIN
     Indication: HYPOGONADISM
     Dosage: 2.4 MG, WEEKLY (DAILY DOSE: 0.4 MG, 5 DAYS PER WEEK)
     Route: 058
  3. GENOTROPIN MQ [Suspect]
     Active Substance: SOMATROPIN
     Dosage: 0.4 MG, 5 DAYS PER WEEK
     Route: 058
  4. DESYREL [Concomitant]
     Active Substance: TRAZODONE HYDROCHLORIDE
     Dosage: 200 MG, DAILY
     Route: 048
  5. DELTASONE [Concomitant]
     Active Substance: PREDNISONE
     Dosage: 20 MG, DAILY
     Route: 048
  6. HYDROCHLOROTHIAZIDE W/LISINOPRIL [Concomitant]
     Active Substance: HYDROCHLOROTHIAZIDE\LISINOPRIL
     Dosage: 1 DF, DAILY (LISINOPRIL: 20 MG); (HYDROCHLOROTHIAZIDE 25MG)
     Route: 048
  7. ADDERALL [Concomitant]
     Active Substance: AMPHETAMINE ASPARTATE\AMPHETAMINE SULFATE\DEXTROAMPHETAMINE SACCHARATE\DEXTROAMPHETAMINE SULFATE
     Dosage: 10 MG, 2X/DAY
     Route: 048
  8. TESTOSTERONE CIPIONATE [Concomitant]
     Active Substance: TESTOSTERONE
     Indication: DELAYED PUBERTY
     Dosage: 200 MG, WEEKLY
     Route: 030
  9. TRETINOIN. [Concomitant]
     Active Substance: TRETINOIN
     Dosage: UNK UNK, DAILY (APPLY 1 APPLICATION TO AFFECTED AREA)
     Route: 061
  10. VOLTAREN [Concomitant]
     Active Substance: DICLOFENAC SODIUM
     Dosage: 75 MG, 2X/DAY
     Route: 048
  11. NORPRAMIN [Concomitant]
     Active Substance: DESIPRAMINE HYDROCHLORIDE
     Dosage: 25 MG, 1X/DAY (BEDTIME)
     Route: 048
  12. TRUVADA [Concomitant]
     Active Substance: EMTRICITABINE\TENOFOVIR DISOPROXIL FUMARATE
     Dosage: 1 DF, DAILY [EMTRICITABINE 200 MG], [TENOFOVIR DISOPROXIL FUMARATE 300 MG]
     Route: 048
  13. KLONOPIN [Concomitant]
     Active Substance: CLONAZEPAM
     Dosage: 1 MG, AS NEEDED (DAILY)
     Route: 048

REACTIONS (5)
  - Depressed mood [Unknown]
  - Fatigue [Unknown]
  - Asthenia [Unknown]
  - Libido decreased [Unknown]
  - Erectile dysfunction [Unknown]
